FAERS Safety Report 5514868-9 (Version None)
Quarter: 2007Q4

REPORT INFORMATION
  Report Type: 
  Country: None (occurrence: None)
  Receive Date: 20071113
  Receipt Date: 20070530
  Transmission Date: 20080405
  Serious: No
  Sender: FDA-Public Use
  Company Number: A0567256A

PATIENT
  Age: 64 Year
  Sex: Female

DRUGS (4)
  1. COREG [Suspect]
     Indication: HYPERTENSION
     Dosage: 3.125MG TWICE PER DAY
     Route: 048
  2. DIOVAN [Concomitant]
  3. SYNTHROID [Concomitant]
  4. DYAZIDE [Concomitant]

REACTIONS (7)
  - FATIGUE [None]
  - FLUID RETENTION [None]
  - MYALGIA [None]
  - PALPITATIONS [None]
  - PRURITUS [None]
  - SKIN LESION [None]
  - WEIGHT INCREASED [None]
